FAERS Safety Report 4843574-9 (Version None)
Quarter: 2005Q4

REPORT INFORMATION
  Report Type: 
  Country: None (occurrence: None)
  Receive Date: 20051202
  Receipt Date: 20050603
  Transmission Date: 20060501
  Serious: Yes (Death, Life-Threatening, Hospitalization)
  Sender: FDA-Public Use
  Company Number: IE-BOEHRINGER INGELHEIM PHARMACEUTICALS, INC.-2005-UK-00982IE

PATIENT
  Age: 22 Year
  Sex: Female

DRUGS (3)
  1. VIRAMUNE TABLETS (EU/1/97/055/001) [Suspect]
     Indication: HIV INFECTION
     Dates: start: 20020801, end: 20050419
  2. COMBIVIR [Concomitant]
     Dates: end: 20050527
  3. KALETRA [Concomitant]
     Dates: start: 20050419, end: 20050527

REACTIONS (12)
  - ABORTION SPONTANEOUS [None]
  - CHRONIC HEPATITIS [None]
  - DRUG EXPOSURE DURING PREGNANCY [None]
  - ENCEPHALOPATHY [None]
  - HEPATIC CIRRHOSIS [None]
  - HEPATIC FAILURE [None]
  - HEPATOTOXICITY [None]
  - INFECTION [None]
  - JAUNDICE [None]
  - LIVER FUNCTION TEST ABNORMAL [None]
  - PREGNANCY [None]
  - SEPSIS [None]
